FAERS Safety Report 11031899 (Version 1)
Quarter: 2015Q2

REPORT INFORMATION
  Report Type: Spontaneous
  Country: US (occurrence: None)
  Receive Date: 20150414
  Receipt Date: 20150414
  Transmission Date: 20150821
  Serious: Yes (Disabling, Other)
  Sender: FDA-Public Use
  Company Number: None

PATIENT
  Age: 54 Year
  Sex: Male
  Weight: 75.75 kg

DRUGS (1)
  1. AMOXICILLIN. [Suspect]
     Active Substance: AMOXICILLIN
     Indication: RESPIRATORY TRACT INFECTION
     Dosage: 21 PILLS 3X DAILY BY MOUTH
     Route: 048
     Dates: start: 20150406, end: 20150406

REACTIONS (9)
  - Palpitations [None]
  - Hypersensitivity [None]
  - Headache [None]
  - Diarrhoea [None]
  - Chest discomfort [None]
  - Dry mouth [None]
  - Feeling hot [None]
  - Muscular weakness [None]
  - Decreased appetite [None]

NARRATIVE: CASE EVENT DATE: 20150406
